FAERS Safety Report 17917471 (Version 1)
Quarter: 2020Q2

REPORT INFORMATION
  Report Type: Report from Study
  Country: CO (occurrence: CO)
  Receive Date: 20200619
  Receipt Date: 20200619
  Transmission Date: 20200714
  Serious: Yes (Other)
  Sender: FDA-Public Use
  Company Number: NVSC2018CO005563

PATIENT

DRUGS (1)
  1. COSENTYX [Suspect]
     Active Substance: SECUKINUMAB
     Indication: PRODUCT USED FOR UNKNOWN INDICATION
     Dosage: UNK (150 MG/1 ML)
     Route: 065

REACTIONS (5)
  - Otitis media [Unknown]
  - Fear [Unknown]
  - Infection [Unknown]
  - Facial paralysis [Unknown]
  - Otitis externa [Unknown]
